FAERS Safety Report 25806650 (Version 1)
Quarter: 2025Q3

REPORT INFORMATION
  Report Type: Spontaneous
  Country: US (occurrence: None)
  Receive Date: 20250915
  Receipt Date: 20250915
  Transmission Date: 20251020
  Serious: Yes (Other)
  Sender: FDA-CTU
  Company Number: None

PATIENT
  Age: 48 Year
  Sex: Female
  Weight: 59.85 kg

DRUGS (11)
  1. ASCENIV [Suspect]
     Active Substance: HUMAN IMMUNOGLOBULIN G
     Indication: Hypogammaglobulinaemia
     Route: 042
     Dates: start: 20250626
  2. Albuterol 108 mcg [Concomitant]
     Dates: start: 20220620
  3. ATORVASTATIN [Concomitant]
     Active Substance: ATORVASTATIN
     Dates: start: 20221013
  4. CETIRIZINE [Concomitant]
     Active Substance: CETIRIZINE HYDROCHLORIDE
     Dates: start: 20220620
  5. Cholecalciferol 125 mcg [Concomitant]
     Dates: start: 20230214
  6. Norco 5-325 mg [Concomitant]
     Dates: start: 20230512
  7. LEVOTHYROXINE SODIUM [Concomitant]
     Active Substance: LEVOTHYROXINE SODIUM
     Dates: start: 20230131
  8. PROTONIX [Concomitant]
     Active Substance: PANTOPRAZOLE SODIUM
     Dates: start: 20230512
  9. Vitamin B-12 1000 mcg/mL injection [Concomitant]
     Dates: start: 20230214
  10. Estradiol 0.1 mg patch [Concomitant]
     Dates: start: 20230503
  11. Fluticasone-umeclidin-vulant 100-62.5-25 mcg [Concomitant]
     Dates: start: 20230214

REACTIONS (6)
  - Infusion related reaction [None]
  - Peripheral swelling [None]
  - Lymphadenopathy [None]
  - Dyspnoea [None]
  - Abdominal distension [None]
  - Flushing [None]

NARRATIVE: CASE EVENT DATE: 20250626
